FAERS Safety Report 10262840 (Version 8)
Quarter: 2015Q2

REPORT INFORMATION
  Report Type: Spontaneous
  Country: US (occurrence: US)
  Receive Date: 20140626
  Receipt Date: 20150615
  Transmission Date: 20150821
  Serious: Yes (Life-Threatening, Hospitalization, Congenital Anomaly, Other)
  Sender: FDA-Public Use
  Company Number: US-ELI_LILLY_AND_COMPANY-US201406008547

PATIENT
  Age: 0 Year

DRUGS (4)
  1. PROZAC [Suspect]
     Active Substance: FLUOXETINE HYDROCHLORIDE
     Indication: DEPRESSION
     Dosage: 20 MG, UNKNOWN
     Route: 064
     Dates: start: 20010927
  2. VICODIN [Concomitant]
     Active Substance: ACETAMINOPHEN\HYDROCODONE BITARTRATE
     Route: 064
  3. FLINTSTONES [Concomitant]
     Route: 064
  4. CLOTRIMAZOLE AND BETAMETHASONE [Concomitant]

REACTIONS (29)
  - Pulmonary artery stenosis [Unknown]
  - Anaemia neonatal [Unknown]
  - Rhinorrhoea [Unknown]
  - Intraventricular haemorrhage [Recovered/Resolved]
  - Tricuspid valve incompetence [Unknown]
  - Mitral valve incompetence [Unknown]
  - Cough [Unknown]
  - Nasal congestion [Unknown]
  - Premature baby [Recovered/Resolved with Sequelae]
  - Atrial septal defect [Unknown]
  - Retinopathy of prematurity [Recovering/Resolving]
  - Low birth weight baby [Recovered/Resolved]
  - Developmental delay [Unknown]
  - Atrial septal defect [Unknown]
  - Sepsis [Unknown]
  - Hypotension [Unknown]
  - Asthma [Unknown]
  - Wheezing [Unknown]
  - Jaundice cholestatic [Unknown]
  - Neonatal respiratory distress syndrome [Recovered/Resolved]
  - Dyspnoea [Unknown]
  - Abdominal pain [Unknown]
  - Peritonitis [Unknown]
  - Foetal exposure during pregnancy [Recovered/Resolved]
  - Necrotising colitis [Unknown]
  - Bronchopulmonary dysplasia [Unknown]
  - Patent ductus arteriosus [Unknown]
  - Ventricular septal defect [Unknown]
  - Small intestinal perforation [Unknown]

NARRATIVE: CASE EVENT DATE: 20030118
